FAERS Safety Report 25979140 (Version 1)
Quarter: 2025Q4

REPORT INFORMATION
  Report Type: Report from Study
  Country: EU (occurrence: EU)
  Receive Date: 20251030
  Receipt Date: 20251030
  Transmission Date: 20260118
  Serious: Yes (Hospitalization)
  Sender: ROCHE
  Company Number: EU-ROCHE-10000416271

PATIENT
  Age: 40 Year
  Sex: Female
  Weight: 61 kg

DRUGS (1)
  1. OCRELIZUMAB [Suspect]
     Active Substance: OCRELIZUMAB
     Indication: Relapsing-remitting multiple sclerosis
     Route: 042
     Dates: start: 20190905, end: 20250409

REACTIONS (4)
  - Muscular weakness [Recovered/Resolved]
  - Hypoaesthesia [Recovered/Resolved]
  - Urinary incontinence [Recovered/Resolved]
  - Fatigue [Recovered/Resolved]

NARRATIVE: CASE EVENT DATE: 20250825
